FAERS Safety Report 6967198-2 (Version None)
Quarter: 2010Q3

REPORT INFORMATION
  Report Type: 
  Country: None (occurrence: None)
  Receive Date: 20100907
  Receipt Date: 20100825
  Transmission Date: 20110219
  Serious: Yes (Life-Threatening, Other)
  Sender: FDA-Public Use
  Company Number: JP-JNJFOC-20100900065

PATIENT

DRUGS (1)
  1. DUROTEP MT PATCH [Suspect]
     Indication: PRODUCT USED FOR UNKNOWN INDICATION
     Dosage: 100+12.5 UG/HR
     Route: 062

REACTIONS (2)
  - GENERAL PHYSICAL CONDITION ABNORMAL [None]
  - HAEMATEMESIS [None]
